FAERS Safety Report 4277938-1 (Version None)
Quarter: 2004Q1

REPORT INFORMATION
  Report Type: 
  Country: None (occurrence: None)
  Receive Date: 20040121
  Receipt Date: 20040106
  Transmission Date: 20041129
  Serious: Yes (Other)
  Sender: FDA-Public Use
  Company Number: B0319350A

PATIENT
  Sex: Female

DRUGS (1)
  1. NICODERM CQ [Suspect]
     Indication: EX-SMOKER
     Dosage: 21 MG PER DAY TRANSDERMAL
     Route: 062
     Dates: start: 20040105

REACTIONS (6)
  - BLINDNESS [None]
  - COGNITIVE DISORDER [None]
  - EYE PAIN [None]
  - HEADACHE [None]
  - MEMORY IMPAIRMENT [None]
  - MOVEMENT DISORDER [None]
